FAERS Safety Report 5500170-8 (Version None)
Quarter: 2007Q4

REPORT INFORMATION
  Report Type: 
  Country: None (occurrence: None)
  Receive Date: 20071025
  Receipt Date: 20070226
  Transmission Date: 20080405
  Serious: Yes (Disabling)
  Sender: FDA-Public Use
  Company Number: 2007AL004306

PATIENT
  Age: 32 Year
  Sex: Female

DRUGS (12)
  1. DIAZEPAM [Suspect]
     Indication: ANXIETY
     Dosage: 5 MG;QD;PO
     Route: 048
  2. FLUANXOL [Concomitant]
  3. CITALOPRAM HYDROBROMIDE [Concomitant]
  4. SOMADRIL [Concomitant]
  5. SEROXAT [Concomitant]
  6. ORUDIS [Concomitant]
  7. DEPO-PROVERA [Concomitant]
  8. TRIONETTA [Concomitant]
  9. BREXIDOL [Concomitant]
  10. CLOTRIMAZOLE [Concomitant]
  11. IMOVANE [Concomitant]
  12. MIRTAZAPINE [Concomitant]

REACTIONS (16)
  - ANXIETY [None]
  - CONDITION AGGRAVATED [None]
  - CONVULSION [None]
  - DRUG DEPENDENCE [None]
  - DRUG WITHDRAWAL SYNDROME [None]
  - FEAR OF DEATH [None]
  - FEELING ABNORMAL [None]
  - GENERAL PHYSICAL HEALTH DETERIORATION [None]
  - HEADACHE [None]
  - HEART RATE ABNORMAL [None]
  - INAPPROPRIATE SCHEDULE OF DRUG ADMINISTRATION [None]
  - INSOMNIA [None]
  - MYALGIA [None]
  - NIGHTMARE [None]
  - PANIC ATTACK [None]
  - SUICIDAL IDEATION [None]
